FAERS Safety Report 5021023-8 (Version None)
Quarter: 2006Q2

REPORT INFORMATION
  Report Type: 
  Country: None (occurrence: None)
  Receive Date: 20060608
  Receipt Date: 20021216
  Transmission Date: 20061013
  Serious: Yes (Other)
  Sender: FDA-Public Use
  Company Number: SE-AVENTIS-200221906GDDC

PATIENT
  Sex: Male

DRUGS (13)
  1. ALTACE [Suspect]
     Dosage: DOSE: UNK
  2. DESIPRAMINE HCL [Suspect]
     Dosage: DOSE: UNK
  3. PROPRANOLOL [Suspect]
     Dosage: DOSE: UNK
  4. NORVASC [Suspect]
     Indication: HYPERTENSION
  5. ZOLOFT [Suspect]
     Dosage: DOSE: UNK
  6. MONOPRIL [Suspect]
     Indication: HYPERTENSION
  7. HYDROCHLOROTHIAZIDE [Suspect]
     Dosage: DOSE: UNK
  8. COZAAR [Suspect]
  9. AVAPRO [Suspect]
  10. AMITRIPTYLINE HCL [Suspect]
     Dosage: DOSE: UNK
  11. PAXIL [Suspect]
     Dosage: DOSE: UNK
  12. EFFEXOR [Suspect]
     Dosage: DOSE: UNK
  13. BUSPAR [Suspect]
     Dosage: DOSE: UNK

REACTIONS (14)
  - DISTURBANCE IN ATTENTION [None]
  - FATIGUE [None]
  - HEADACHE [None]
  - HYPERHIDROSIS [None]
  - MALAISE [None]
  - MEMORY IMPAIRMENT [None]
  - MYALGIA [None]
  - NERVOUSNESS [None]
  - PAIN [None]
  - SKIN DISORDER [None]
  - SOMNOLENCE [None]
  - SUICIDAL IDEATION [None]
  - TACHYCARDIA [None]
  - TREMOR [None]
